FAERS Safety Report 9119622 (Version 2)
Quarter: 2013Q4

REPORT INFORMATION
  Report Type: Spontaneous
  Country: US (occurrence: US)
  Receive Date: 20130226
  Receipt Date: 20131129
  Transmission Date: 20140711
  Serious: No
  Sender: FDA-Public Use
  Company Number: US-PFIZER INC-2013069620

PATIENT
  Age: 56 Year
  Sex: Female
  Weight: 132 kg

DRUGS (8)
  1. LYRICA [Suspect]
     Indication: KNEE ARTHROPLASTY
     Dosage: 75 MG, 3X/DAY
     Dates: start: 201207, end: 2012
  2. LYRICA [Suspect]
     Indication: NEURALGIA
     Dosage: 75 MG, 3X/DAY
  3. LYRICA [Suspect]
     Indication: BACK PAIN
  4. LYRICA [Suspect]
     Indication: MUSCULOSKELETAL PAIN
  5. NORCO [Concomitant]
     Dosage: UNK
  6. FLEXERIL [Concomitant]
     Indication: MUSCLE RELAXANT THERAPY
     Dosage: UNK
  7. CELEBREX [Concomitant]
     Dosage: UNK, 1X/DAY
  8. HYDROCODONE [Concomitant]
     Indication: PROCEDURAL PAIN
     Dosage: EVERY 4-6 HRS

REACTIONS (6)
  - Arthralgia [Not Recovered/Not Resolved]
  - Pain in extremity [Not Recovered/Not Resolved]
  - Musculoskeletal pain [Not Recovered/Not Resolved]
  - Back pain [Not Recovered/Not Resolved]
  - Arthralgia [Not Recovered/Not Resolved]
  - Drug ineffective [Not Recovered/Not Resolved]
